FAERS Safety Report 9116723 (Version 1)
Quarter: 2013Q1

REPORT INFORMATION
  Report Type: Spontaneous
  Country: RO (occurrence: RO)
  Receive Date: 20130225
  Receipt Date: 20130225
  Transmission Date: 20140127
  Serious: Yes (Congenital Anomaly, Other)
  Sender: FDA-Public Use
  Company Number: RO-NOVOPROD-371307

PATIENT
  Sex: Male
  Weight: 1.9 kg

DRUGS (6)
  1. ACTRAPID [Suspect]
     Indication: TYPE 1 DIABETES MELLITUS
     Route: 064
  2. INSULIN HUMAN [Suspect]
     Indication: TYPE 1 DIABETES MELLITUS
     Route: 064
  3. DEXAMETHASONE [Concomitant]
  4. AMPICILLIN [Concomitant]
  5. GENTAMYCIN                         /00047101/ [Concomitant]
  6. PHYTOMENADIONE [Concomitant]

REACTIONS (6)
  - Cardiac septal defect [Recovered/Resolved with Sequelae]
  - Transposition of the great vessels [Recovered/Resolved with Sequelae]
  - Premature baby [Recovered/Resolved with Sequelae]
  - Foetal exposure during pregnancy [Recovered/Resolved]
  - Neonatal respiratory distress syndrome [None]
  - Cyanosis neonatal [None]
